FAERS Safety Report 9277175 (Version 1)
Quarter: 2013Q2

REPORT INFORMATION
  Report Type: Spontaneous
  Country: CA (occurrence: CA)
  Receive Date: 20130508
  Receipt Date: 20130508
  Transmission Date: 20140414
  Serious: Yes (Hospitalization)
  Sender: FDA-Public Use
  Company Number: CA-AMGEN-CANSP2013031179

PATIENT
  Age: 51 Year
  Sex: Female

DRUGS (3)
  1. ENBREL [Suspect]
     Indication: RHEUMATOID ARTHRITIS
     Dosage: 50 MG, UNK
     Dates: start: 20120502, end: 20130320
  2. HUMIRA [Suspect]
     Dosage: UNK
     Dates: start: 201303
  3. METHOTREXATE [Concomitant]
     Dosage: UNK

REACTIONS (7)
  - Gastric haemorrhage [Not Recovered/Not Resolved]
  - Incision site haemorrhage [Unknown]
  - Post procedural haemorrhage [Unknown]
  - Vomiting [Not Recovered/Not Resolved]
  - Intestinal obstruction [Not Recovered/Not Resolved]
  - Crohn^s disease [Not Recovered/Not Resolved]
  - Drug ineffective [Unknown]
